FAERS Safety Report 11998672 (Version 1)
Quarter: 2016Q1

REPORT INFORMATION
  Report Type: Report from Study
  Country: US (occurrence: US)
  Receive Date: 20160203
  Receipt Date: 20160203
  Transmission Date: 20160526
  Serious: No
  Sender: FDA-Public Use
  Company Number: US-ABBVIE-15K-163-1418153-00

PATIENT
  Age: 34 Year
  Sex: Male
  Weight: 72.64 kg

DRUGS (3)
  1. HUMIRA [Suspect]
     Active Substance: ADALIMUMAB
     Indication: CROHN^S DISEASE
     Dosage: 1ST LOADING DOSE
     Route: 058
     Dates: start: 20150626, end: 20150626
  2. HUMIRA [Suspect]
     Active Substance: ADALIMUMAB
     Route: 058
  3. SINGULAIR [Concomitant]
     Active Substance: MONTELUKAST SODIUM
     Indication: SEASONAL ALLERGY

REACTIONS (1)
  - Injection site erythema [Recovering/Resolving]

NARRATIVE: CASE EVENT DATE: 20150626
